FAERS Safety Report 7164832-1 (Version None)
Quarter: 2010Q4

REPORT INFORMATION
  Report Type: 
  Country: None (occurrence: None)
  Receive Date: 20101215
  Receipt Date: 20101213
  Transmission Date: 20110411
  Serious: Yes (Congenital Anomaly)
  Sender: FDA-Public Use
  Company Number: NO-MERCK-1012NOR00001B1

PATIENT
  Age: 3 Year
  Sex: Male

DRUGS (4)
  1. FOSAMAX [Suspect]
     Route: 064
  2. AZATHIOPRINE [Suspect]
     Route: 064
  3. PREDNISOLONE [Suspect]
     Route: 064
  4. BUDESONIDE [Suspect]
     Route: 064

REACTIONS (1)
  - TOOTH HYPOPLASIA [None]
